FAERS Safety Report 8573063-X (Version None)
Quarter: 2012Q3

REPORT INFORMATION
  Report Type: 
  Country: None (occurrence: None)
  Receive Date: 20120806
  Receipt Date: 20120727
  Transmission Date: 20120928
  Serious: Yes (Other)
  Sender: FDA-Public Use
  Company Number: JP-VERTEX PHARMACEUTICALS INC.-AE-2012-007470

PATIENT
  Age: 64 Year
  Sex: Female

DRUGS (13)
  1. REBETOL [Concomitant]
     Indication: HEPATITIS C
     Route: 048
     Dates: start: 20120312, end: 20120401
  2. REBETOL [Concomitant]
     Route: 048
     Dates: start: 20120620
  3. PEGINTERFERON ALFA-2B [Concomitant]
     Route: 058
     Dates: start: 20120507
  4. TELAVIC (TELAPREVIR) [Suspect]
     Indication: HEPATITIS C
     Route: 048
     Dates: start: 20120312, end: 20120516
  5. REBETOL [Concomitant]
     Route: 048
     Dates: start: 20120626
  6. PEGINTERFERON ALFA-2B [Concomitant]
     Route: 058
     Dates: start: 20120319, end: 20120401
  7. REBETOL [Concomitant]
     Route: 048
     Dates: start: 20120603
  8. PEGINTERFERON ALFA-2B [Concomitant]
     Indication: HEPATITIS C
     Route: 058
     Dates: start: 20120312, end: 20120318
  9. PEGINTERFERON ALFA-2B [Concomitant]
     Route: 058
     Dates: start: 20120402, end: 20120423
  10. SELBEX [Concomitant]
     Route: 048
     Dates: start: 20120313
  11. TELAVIC (TELAPREVIR) [Suspect]
     Route: 048
     Dates: start: 20120517, end: 20120602
  12. REBETOL [Concomitant]
     Route: 048
     Dates: start: 20120402, end: 20120409
  13. REBETOL [Concomitant]
     Route: 048
     Dates: start: 20120416, end: 20120513

REACTIONS (1)
  - NEUTROPHIL COUNT DECREASED [None]
